FAERS Safety Report 13292892 (Version 6)
Quarter: 2017Q2

REPORT INFORMATION
  Report Type: Report from Study
  Country: JP (occurrence: JP)
  Receive Date: 20170303
  Receipt Date: 20170626
  Transmission Date: 20170830
  Serious: Yes (Life-Threatening, Hospitalization)
  Sender: FDA-Public Use
  Company Number: JP-ROCHE-1900203

PATIENT
  Age: 59 Year
  Sex: Female
  Weight: 50.1 kg

DRUGS (7)
  1. PERTUZUMAB [Suspect]
     Active Substance: PERTUZUMAB
     Dosage: MAINTANANCE DOSE 420 MG ?DOSE OF LAST PERTUZUMAB ADMINISTERED 420 MG ON 12/JUN/2015
     Route: 042
  2. CYCLOPHOSPHAMIDE. [Suspect]
     Active Substance: CYCLOPHOSPHAMIDE
     Indication: HER-2 POSITIVE BREAST CANCER
     Route: 042
     Dates: start: 20140314
  3. DOXORUBICIN [Suspect]
     Active Substance: DOXORUBICIN
     Indication: HER-2 POSITIVE BREAST CANCER
     Route: 042
     Dates: start: 20140314
  4. TRASTUZUMAB EMTANSINE [Suspect]
     Active Substance: ADO-TRASTUZUMAB EMTANSINE
     Indication: HER-2 POSITIVE BREAST CANCER
     Dosage: MOST RECENT DOSE ON 12/JUN/2015- 155 MG
     Route: 042
     Dates: start: 20140606
  5. LETROZOLE. [Concomitant]
     Active Substance: LETROZOLE
     Indication: HORMONE THERAPY
     Route: 065
     Dates: start: 20151113
  6. PERTUZUMAB [Suspect]
     Active Substance: PERTUZUMAB
     Indication: HER-2 POSITIVE BREAST CANCER
     Dosage: LOADING DOSE
     Route: 042
     Dates: start: 20140606, end: 20140606
  7. CARVEDILOL. [Concomitant]
     Active Substance: CARVEDILOL
     Indication: EJECTION FRACTION DECREASED
     Route: 065
     Dates: start: 20160705, end: 20170227

REACTIONS (1)
  - Cardiac failure congestive [Recovered/Resolved]

NARRATIVE: CASE EVENT DATE: 20170227
